FAERS Safety Report 19014206 (Version 3)
Quarter: 2021Q2

REPORT INFORMATION
  Report Type: Spontaneous
  Country: PS (occurrence: PS)
  Receive Date: 20210316
  Receipt Date: 20210602
  Transmission Date: 20210717
  Serious: Yes (Death, Other)
  Sender: FDA-Public Use
  Company Number: PS-JNJFOC-20210325811

PATIENT
  Age: 57 Year
  Sex: Female

DRUGS (4)
  1. XARELTO [Suspect]
     Active Substance: RIVAROXABAN
     Indication: COVID-19
     Dosage: 10 MG, QD
     Route: 048
     Dates: start: 20210307, end: 20210309
  2. ASPIRIN PROTECT 100 MG [Suspect]
     Active Substance: ASPIRIN
     Dosage: UNK
     Route: 048
     Dates: start: 1999
  3. PLAVIX [Suspect]
     Active Substance: CLOPIDOGREL BISULFATE
  4. CLOPIDOGREL [Suspect]
     Active Substance: CLOPIDOGREL BISULFATE
     Dosage: UNK
     Route: 048
     Dates: start: 1999

REACTIONS (7)
  - Vomiting [Unknown]
  - Off label use [Unknown]
  - Angina pectoris [Unknown]
  - Depressed level of consciousness [Unknown]
  - Intracranial pressure increased [Unknown]
  - Nausea [Unknown]
  - Cerebral haemorrhage [Fatal]

NARRATIVE: CASE EVENT DATE: 20210309
